FAERS Safety Report 4994586-6 (Version None)
Quarter: 2006Q2

REPORT INFORMATION
  Report Type: 
  Country: None (occurrence: None)
  Receive Date: 20060505
  Receipt Date: 20060209
  Transmission Date: 20061013
  Serious: Yes (Hospitalization)
  Sender: FDA-Public Use
  Company Number: US-MERCK-0602USA02451

PATIENT
  Age: 74 Year
  Sex: Female
  Weight: 59 kg

DRUGS (10)
  1. VIOXX [Suspect]
     Indication: ARTHRITIS
     Route: 048
     Dates: start: 19990601, end: 20030201
  2. DILTIAZEM HYDROCHLORIDE [Concomitant]
     Route: 065
  3. CEPHALEXIN [Concomitant]
     Route: 065
  4. CARDIZEM [Concomitant]
     Route: 065
  5. ATENOLOL [Concomitant]
     Route: 065
  6. PREVACID [Concomitant]
     Route: 065
  7. AMITRIPTYLINE HYDROCHLORIDE [Concomitant]
     Route: 065
  8. PREDNISONE [Concomitant]
     Route: 065
  9. ASPIRIN [Concomitant]
     Route: 065
  10. ULTRAM [Concomitant]
     Route: 065

REACTIONS (1)
  - MYOCARDIAL INFARCTION [None]
